FAERS Safety Report 8418403-7 (Version None)
Quarter: 2012Q2

REPORT INFORMATION
  Report Type: 
  Country: None (occurrence: None)
  Receive Date: 20120607
  Receipt Date: 20120531
  Transmission Date: 20120825
  Serious: Yes (Other)
  Sender: FDA-Public Use
  Company Number: US-PFIZER INC-2012132344

PATIENT
  Sex: Female

DRUGS (2)
  1. LYRICA [Suspect]
     Dosage: INCREASED
  2. LYRICA [Suspect]
     Indication: FIBROMYALGIA
     Dosage: UNK

REACTIONS (15)
  - ABDOMINAL DISTENSION [None]
  - SWELLING [None]
  - AURICULAR SWELLING [None]
  - DRUG INEFFECTIVE [None]
  - JOINT SWELLING [None]
  - OEDEMA PERIPHERAL [None]
  - ERYTHEMA [None]
  - DIZZINESS [None]
  - BREAST SWELLING [None]
  - GINGIVAL SWELLING [None]
  - DEPRESSION SUICIDAL [None]
  - LIGAMENT SPRAIN [None]
  - MASTOIDITIS [None]
  - SCROTAL SWELLING [None]
  - PREMENSTRUAL SYNDROME [None]
